FAERS Safety Report 7043437-7 (Version None)
Quarter: 2010Q4

REPORT INFORMATION
  Report Type: 
  Country: None (occurrence: None)
  Receive Date: 20101013
  Receipt Date: 20100501
  Transmission Date: 20110411
  Serious: No
  Sender: FDA-Public Use
  Company Number: US-BAUSCH-2010BL002312

PATIENT
  Age: 36 Year
  Sex: Male
  Weight: 97 kg

DRUGS (1)
  1. NEOMYCIN AND POLYMXIN B SULFATES AND HYDROCORTISONE [Suspect]
     Indication: EAR ABRASION
     Route: 001
     Dates: start: 20100416, end: 20100420

REACTIONS (2)
  - HYPOACUSIS [None]
  - TINNITUS [None]
